FAERS Safety Report 21842346 (Version 1)
Quarter: 2023Q1

REPORT INFORMATION
  Report Type: Spontaneous
  Country: CN (occurrence: None)
  Receive Date: 20230110
  Receipt Date: 20230110
  Transmission Date: 20230418
  Serious: Yes (Other)
  Sender: FDA-Public Use
  Company Number: CN-ROCHE-3259149

PATIENT
  Age: 57 Year
  Sex: Female

DRUGS (5)
  1. MABTHERA [Suspect]
     Active Substance: RITUXIMAB
     Indication: Diffuse large B-cell lymphoma
     Dosage: ON APR/2019, MOST RECENT DOSE WAS ADMINISTERED (SIX CYCLES)
     Route: 065
     Dates: start: 201901
  2. GAZYVA [Suspect]
     Active Substance: OBINUTUZUMAB
     Indication: Diffuse large B-cell lymphoma
     Dosage: ON OCT/2022, MOST RECENT DOSE WAS ADMINISTERED (4CYCLES)
     Route: 042
     Dates: start: 202206
  3. GEMCITABINE [Concomitant]
     Active Substance: GEMCITABINE
     Indication: Diffuse large B-cell lymphoma
     Dosage: ON APR/2019, MOST RECENT DOSE WAS ADMINISTERED (SIX CYCLES)
     Dates: start: 201901
  4. OXALIPLATIN [Concomitant]
     Active Substance: OXALIPLATIN
     Indication: Diffuse large B-cell lymphoma
     Dosage: ON APR/2019, MOST RECENT DOSE WAS ADMINISTERED (SIX CYCLES)
     Dates: start: 201901
  5. METHOTREXATE [Concomitant]
     Active Substance: METHOTREXATE
     Indication: Diffuse large B-cell lymphoma
     Dosage: ON OCT/2022, MOST RECENT DOSE WAS ADMINISTERED (4CYCLES)
     Dates: start: 202206

REACTIONS (7)
  - Headache [Unknown]
  - Nausea [Unknown]
  - Vomiting [Unknown]
  - Off label use [Unknown]
  - Movement disorder [Recovered/Resolved]
  - Dysarthria [Recovered/Resolved]
  - Altered state of consciousness [Recovered/Resolved]

NARRATIVE: CASE EVENT DATE: 20220501
